FAERS Safety Report 14576151 (Version 2)
Quarter: 2018Q2

REPORT INFORMATION
  Report Type: Spontaneous
  Country: PL (occurrence: PL)
  Receive Date: 20180227
  Receipt Date: 20180629
  Transmission Date: 20180711
  Serious: Yes (Other)
  Sender: FDA-Public Use
  Company Number: PL-SUN PHARMACEUTICAL INDUSTRIES LTD-2018RR-164562

PATIENT
  Age: 68 Year
  Sex: Female

DRUGS (1)
  1. KLABAX 500 MG TABLETS [Suspect]
     Active Substance: CLARITHROMYCIN
     Indication: BRONCHITIS
     Dosage: 500 MG, TWICE A DAY
     Route: 048

REACTIONS (7)
  - Abdominal pain [Recovered/Resolved]
  - Dysgeusia [Recovered/Resolved]
  - Chest pain [Recovered/Resolved]
  - Hyperhidrosis [Recovered/Resolved]
  - Pulse abnormal [Recovered/Resolved]
  - Oral discomfort [Recovered/Resolved]
  - Nightmare [Recovered/Resolved]
